FAERS Safety Report 4381409-1 (Version None)
Quarter: 2004Q2

REPORT INFORMATION
  Report Type: 
  Country: None (occurrence: None)
  Receive Date: 20040617
  Receipt Date: 20040617
  Transmission Date: 20050107
  Serious: Yes (Death)
  Sender: FDA-Public Use
  Company Number: None

PATIENT
  Age: 51 Year
  Sex: Male
  Weight: 96.1626 kg

DRUGS (1)
  1. TAXOL [Suspect]

REACTIONS (3)
  - CARDIAC ARREST [None]
  - MEDICAL DEVICE COMPLICATION [None]
  - STENT OCCLUSION [None]
